FAERS Safety Report 6465719-X (Version None)
Quarter: 2009Q4

REPORT INFORMATION
  Report Type: 
  Country: None (occurrence: None)
  Receive Date: 20091201
  Receipt Date: 20091123
  Transmission Date: 20100525
  Serious: Yes (Other)
  Sender: FDA-Public Use
  Company Number: US-GENENTECH-294848

PATIENT
  Age: 49 Year
  Sex: Female
  Weight: 59.1 kg

DRUGS (8)
  1. RITUXAN [Suspect]
     Indication: DERMATOMYOSITIS
     Dosage: 1000 MG, UNK
     Dates: start: 20070501
  2. RITUXAN [Suspect]
     Indication: AUTOIMMUNE THYROIDITIS
     Dosage: 1000 MG, UNK
     Dates: start: 20071201
  3. RITUXAN [Suspect]
     Dosage: 375 MG/M2, UNK
     Dates: start: 20090501
  4. RITUXAN [Suspect]
     Dosage: 100 MG, UNK
     Dates: start: 20091101
  5. SYNTHROID [Concomitant]
     Indication: DRUG USE FOR UNKNOWN INDICATION
  6. BENZODIAZEPINE [Concomitant]
     Indication: DRUG USE FOR UNKNOWN INDICATION
  7. BACLOFEN [Concomitant]
     Indication: DRUG USE FOR UNKNOWN INDICATION
  8. PREDNISONE TAB [Concomitant]
     Indication: DRUG USE FOR UNKNOWN INDICATION

REACTIONS (2)
  - ABDOMINAL ADHESIONS [None]
  - APPENDICITIS [None]
